FAERS Safety Report 19276456 (Version 2)
Quarter: 2021Q2

REPORT INFORMATION
  Report Type: Spontaneous
  Country: CA (occurrence: CA)
  Receive Date: 20210519
  Receipt Date: 20210625
  Transmission Date: 20210717
  Serious: Yes (Hospitalization, Other)
  Sender: FDA-Public Use
  Company Number: CA-ANIPHARMA-2021-CA-000632

PATIENT
  Age: 75 Year
  Sex: Male

DRUGS (16)
  1. EZETIMIBE. [Concomitant]
     Active Substance: EZETIMIBE
     Dosage: 10 MG DAILY
     Route: 048
  2. METOPROLOL. [Suspect]
     Active Substance: METOPROLOL
     Dosage: 200 MG DAILY
     Route: 048
  3. FUROSEMIDE. [Suspect]
     Active Substance: FUROSEMIDE
     Dosage: 20 MG DAILY / 20 MG DAILY
     Route: 048
  4. MIRAPEX [Suspect]
     Active Substance: PRAMIPEXOLE DIHYDROCHLORIDE
     Route: 048
  5. TRAZODONE [Concomitant]
     Active Substance: TRAZODONE HYDROCHLORIDE
     Dosage: 50 MG DAILY
     Route: 048
  6. ROSUVASTATIN CALCIUM. [Concomitant]
     Active Substance: ROSUVASTATIN CALCIUM
     Dosage: 20 MG DAILY
     Route: 048
  7. AMLODIPINE [Suspect]
     Active Substance: AMLODIPINE BESYLATE
     Dosage: 10 MG DAILY
     Route: 048
  8. NITROGLYCERIN. [Suspect]
     Active Substance: NITROGLYCERIN
     Dosage: 1 MG DAILY
     Route: 061
  9. BICALUTAMIDE. [Concomitant]
     Active Substance: BICALUTAMIDE
     Dosage: 50 MG DAILY
     Route: 048
  10. FLOMAX [Suspect]
     Active Substance: TAMSULOSIN HYDROCHLORIDE
     Dosage: .4 MG DAILY
     Route: 048
  11. JARDIANCE [Suspect]
     Active Substance: EMPAGLIFLOZIN
     Route: 048
  12. CLOPIDOGREL [Concomitant]
     Active Substance: CLOPIDOGREL BISULFATE
     Dosage: 75 MG DAILY
     Route: 048
  13. CANDESARTAN CILEXETIL. [Suspect]
     Active Substance: CANDESARTAN CILEXETIL
     Indication: CARDIAC FAILURE
     Dosage: 4 MG DAILY
     Route: 048
  14. RIVAROXABAN [Concomitant]
     Active Substance: RIVAROXABAN
     Dosage: 15 MG DAILY
     Route: 048
  15. AMIODARONE [Suspect]
     Active Substance: AMIODARONE
     Dosage: 200 MG DAILY
     Route: 048
  16. DILTIAZEM. [Suspect]
     Active Substance: DILTIAZEM
     Dosage: 2.5 MG DAILY
     Route: 048

REACTIONS (4)
  - Hypotension [Recovered/Resolved with Sequelae]
  - Hyperthyroidism [Not Recovered/Not Resolved]
  - Troponin increased [Not Recovered/Not Resolved]
  - Adrenal insufficiency [Unknown]

NARRATIVE: CASE EVENT DATE: 20201101
